FAERS Safety Report 22392105 (Version 1)
Quarter: 2023Q2

REPORT INFORMATION
  Report Type: Spontaneous
  Country: US (occurrence: US)
  Receive Date: 20230601
  Receipt Date: 20230601
  Transmission Date: 20230722
  Serious: No
  Sender: FDA-Public Use
  Company Number: US-AMGEN-USASP2023091382

PATIENT
  Age: 50 Year
  Sex: Male

DRUGS (2)
  1. TAVNEOS [Suspect]
     Active Substance: AVACOPAN
     Indication: Granulomatosis with polyangiitis
     Dosage: 30 MILLIGRAM, BID (30 MG/TWICE DAILY )
     Route: 048
     Dates: start: 20230309
  2. TAVNEOS [Suspect]
     Active Substance: AVACOPAN
     Indication: Glomerulonephritis

REACTIONS (1)
  - Cardiovascular symptom [Unknown]

NARRATIVE: CASE EVENT DATE: 20230501
